FAERS Safety Report 17039458 (Version 3)
Quarter: 2020Q2

REPORT INFORMATION
  Report Type: Spontaneous
  Country: RO (occurrence: RO)
  Receive Date: 20191115
  Receipt Date: 20200603
  Transmission Date: 20200713
  Serious: No
  Sender: FDA-Public Use
  Company Number: RO-TOLMAR, INC.-19RO000925

PATIENT
  Sex: Male

DRUGS (1)
  1. ELIGARD [Suspect]
     Active Substance: LEUPROLIDE ACETATE
     Indication: PROSTATE CANCER
     Dosage: 22.5 MG, Q 3 MONTH
     Route: 065
     Dates: start: 20190716

REACTIONS (5)
  - Product physical consistency issue [None]
  - Wrong technique in product usage process [None]
  - Intercepted product preparation error [None]
  - Device leakage [None]
  - Syringe issue [None]

NARRATIVE: CASE EVENT DATE: 20191021
